FAERS Safety Report 8508208 (Version 2)
Quarter: 2014Q4

REPORT INFORMATION
  Report Type: Spontaneous
  Country: US (occurrence: US)
  Receive Date: 20120412
  Receipt Date: 20141216
  Transmission Date: 20150529
  Serious: No
  Sender: FDA-Public Use
  Company Number: US-ASTRAZENECA-2011SE63698

PATIENT
  Age: 506 Month
  Sex: Female
  Weight: 79.4 kg

DRUGS (10)
  1. RHINOCORT AQUA [Suspect]
     Active Substance: BUDESONIDE
     Indication: METASTASES TO NASAL SINUSES
     Dosage: TWICE DAILY. UNKNOWN
     Route: 045
     Dates: start: 201410, end: 201410
  2. RHINOCORT AQUA [Suspect]
     Active Substance: BUDESONIDE
     Indication: METASTASES TO NASAL SINUSES
     Dosage: TWICE DAILY, UNKNOWN
     Route: 045
     Dates: start: 201410
  3. ALLEGRA [Suspect]
     Active Substance: FEXOFENADINE HYDROCHLORIDE
     Route: 065
  4. RHINOCORT AQUA [Suspect]
     Active Substance: BUDESONIDE
     Indication: ASTHMA
     Dosage: TWICE DAILY. UNKNOWN
     Route: 045
     Dates: start: 2006, end: 201410
  5. NEXIUM [Suspect]
     Active Substance: ESOMEPRAZOLE MAGNESIUM
     Route: 048
  6. ALLERGY SHOTS [Concomitant]
     Active Substance: UNSPECIFIED INGREDIENT
     Indication: HYPERSENSITIVITY
  7. RHINOCORT AQUA [Suspect]
     Active Substance: BUDESONIDE
     Indication: ASTHMA
     Dosage: TWICE DAILY. UNKNOWN
     Route: 045
     Dates: start: 201410, end: 201410
  8. RHINOCORT AQUA [Suspect]
     Active Substance: BUDESONIDE
     Indication: METASTASES TO NASAL SINUSES
     Dosage: TWICE DAILY. UNKNOWN
     Route: 045
     Dates: start: 2006, end: 201410
  9. RHINOCORT AQUA [Suspect]
     Active Substance: BUDESONIDE
     Indication: ASTHMA
     Dosage: TWICE DAILY, UNKNOWN
     Route: 045
     Dates: start: 201410
  10. XOLIAR [Concomitant]
     Indication: ASTHMA

REACTIONS (8)
  - Sinus disorder [Unknown]
  - Asthma [Unknown]
  - Rhinorrhoea [Recovered/Resolved]
  - Product use issue [Unknown]
  - Urticaria [Recovered/Resolved]
  - Gastrooesophageal reflux disease [Unknown]
  - Choking [Recovered/Resolved]
  - Sneezing [Recovered/Resolved]

NARRATIVE: CASE EVENT DATE: 201407
